FAERS Safety Report 5265338-7 (Version None)
Quarter: 2007Q1

REPORT INFORMATION
  Report Type: 
  Country: None (occurrence: None)
  Receive Date: 20070314
  Receipt Date: 20070307
  Transmission Date: 20070707
  Serious: Yes (Other)
  Sender: FDA-Public Use
  Company Number: US-SANOFI-SYNTHELABO-A03200701878

PATIENT
  Sex: Male

DRUGS (6)
  1. PLAVIX [Suspect]
     Indication: STENT PLACEMENT
     Dosage: UNK
     Route: 048
     Dates: start: 20070201
  2. TOPROL-XL [Concomitant]
     Dosage: UNK
     Route: 048
  3. ZOCOR [Concomitant]
     Dosage: UNK
     Route: 048
  4. CHANTIX [Concomitant]
     Dosage: UNK
     Route: 048
  5. TRICOR [Concomitant]
     Dosage: UNK
     Route: 048
  6. ZESTRIL [Concomitant]
     Dosage: UNK
     Route: 048

REACTIONS (3)
  - ABNORMAL DREAMS [None]
  - CONTUSION [None]
  - PARANOIA [None]
